FAERS Safety Report 9641752 (Version 1)
Quarter: 2013Q4

REPORT INFORMATION
  Report Type: Spontaneous
  Country: GB (occurrence: GB)
  Receive Date: 20131023
  Receipt Date: 20131023
  Transmission Date: 20140711
  Serious: Yes (Disabling, Other)
  Sender: FDA-Public Use
  Company Number: GB-TEVA-438084ISR

PATIENT
  Age: 22 Year
  Sex: Male
  Weight: 73.93 kg

DRUGS (1)
  1. CITALOPRAM [Suspect]
     Indication: BURNING MOUTH SYNDROME
     Route: 048
     Dates: end: 20120401

REACTIONS (6)
  - Tachyphylaxis [Recovering/Resolving]
  - Apathy [Unknown]
  - Unresponsive to stimuli [Unknown]
  - Decreased interest [Unknown]
  - Nervous system disorder [Unknown]
  - Depression [Unknown]
